FAERS Safety Report 6645803-8 (Version None)
Quarter: 2010Q1

REPORT INFORMATION
  Report Type: 
  Country: None (occurrence: None)
  Receive Date: 20100323
  Receipt Date: 20100316
  Transmission Date: 20100710
  Serious: Yes (Death)
  Sender: FDA-Public Use
  Company Number: TR-ELI_LILLY_AND_COMPANY-TR201003004316

PATIENT
  Age: 75 Year
  Sex: Female

DRUGS (3)
  1. HUMULIN R [Suspect]
     Indication: DIABETES MELLITUS
     Dosage: 8 U, EACH MORNING
     Route: 058
     Dates: start: 20091001, end: 20100226
  2. HUMULIN R [Suspect]
     Dosage: 8 U, EACH EVENING
     Route: 058
     Dates: start: 20091001, end: 20100226
  3. HUMULIN R [Suspect]
     Dosage: 12 U, OTHER (NIGHT)
     Route: 058
     Dates: start: 20091001, end: 20100226

REACTIONS (1)
  - CEREBRAL ARTERY EMBOLISM [None]
